FAERS Safety Report 6267320-X (Version None)
Quarter: 2009Q3

REPORT INFORMATION
  Report Type: 
  Country: None (occurrence: None)
  Receive Date: 20090710
  Receipt Date: 20090706
  Transmission Date: 20100115
  Serious: Yes (Life-Threatening)
  Sender: FDA-Public Use
  Company Number: 2009US002008

PATIENT
  Age: 67 Year
  Sex: Female

DRUGS (10)
  1. AMBISOME [Suspect]
     Indication: FEBRILE NEUTROPENIA
     Dosage: 100 MG, UID/QD, IV DRIP
     Route: 041
     Dates: start: 20090430, end: 20090512
  2. TARGOCID [Suspect]
     Indication: DRUG USE FOR UNKNOWN INDICATION
     Dosage: 800 MG, UID/QD, IV DRIP; 400 MG, UID/QD, IV DRIP
     Route: 041
     Dates: start: 20090430, end: 20090501
  3. TARGOCID [Suspect]
     Indication: DRUG USE FOR UNKNOWN INDICATION
     Dosage: 800 MG, UID/QD, IV DRIP; 400 MG, UID/QD, IV DRIP
     Route: 041
     Dates: start: 20090502, end: 20090507
  4. TARGOCID [Suspect]
     Indication: DRUG USE FOR UNKNOWN INDICATION
     Dosage: 800 MG, UID/QD, IV DRIP; 400 MG, UID/QD, IV DRIP
     Route: 041
     Dates: start: 20090511, end: 20090511
  5. TARGOCID [Suspect]
     Indication: DRUG USE FOR UNKNOWN INDICATION
     Dosage: 800 MG, UID/QD, IV DRIP; 400 MG, UID/QD, IV DRIP
     Route: 041
     Dates: start: 20090512, end: 20090513
  6. TARGOCID [Suspect]
     Indication: DRUG USE FOR UNKNOWN INDICATION
     Dosage: 800 MG, UID/QD, IV DRIP; 400 MG, UID/QD, IV DRIP
     Route: 041
     Dates: start: 20090514, end: 20090514
  7. KYTRIL [Concomitant]
  8. CYTARABINE [Concomitant]
  9. MAXIPIME [Concomitant]
  10. NEUPOGEN [Concomitant]

REACTIONS (2)
  - DISSEMINATED INTRAVASCULAR COAGULATION [None]
  - HISTIOCYTOSIS HAEMATOPHAGIC [None]
